FAERS Safety Report 5786759-X (Version None)
Quarter: 2008Q2

REPORT INFORMATION
  Report Type: 
  Country: None (occurrence: None)
  Receive Date: 20080618
  Receipt Date: 20080609
  Transmission Date: 20081010
  Serious: Yes (Congenital Anomaly, Other)
  Sender: FDA-Public Use
  Company Number: ADE2008-0233

PATIENT
  Age: 39 Week
  Sex: Male
  Weight: 4.39 kg

DRUGS (1)
  1. CITALOPRAM HYDROBROMIDE [Suspect]
     Indication: PANIC DISORDER
     Dosage: 20MG,QD,TRANSPLACENTAL
     Route: 064
     Dates: start: 20061009

REACTIONS (4)
  - CONGENITAL HYDRONEPHROSIS [None]
  - MATERNAL DRUGS AFFECTING FOETUS [None]
  - NEONATAL DISORDER [None]
  - PYELOCALIECTASIS [None]
